FAERS Safety Report 8427906-0 (Version None)
Quarter: 2012Q2

REPORT INFORMATION
  Report Type: 
  Country: None (occurrence: None)
  Receive Date: 20120611
  Receipt Date: 20120529
  Transmission Date: 20120825
  Serious: Yes (Other)
  Sender: FDA-Public Use
  Company Number: AR-ROCHE-1074113

PATIENT
  Sex: Male

DRUGS (3)
  1. XOLAIR [Suspect]
  2. XOLAIR [Suspect]
  3. XOLAIR [Suspect]
     Indication: BRONCHITIS
     Dosage: VIAL
     Dates: start: 20080101, end: 20120101

REACTIONS (2)
  - NASOPHARYNGITIS [None]
  - PULMONARY FIBROSIS [None]
